FAERS Safety Report 4765944-X (Version None)
Quarter: 2005Q3

REPORT INFORMATION
  Report Type: 
  Country: None (occurrence: None)
  Receive Date: 20050908
  Receipt Date: 20050908
  Transmission Date: 20060218
  Serious: Yes (Hospitalization)
  Sender: FDA-Public Use
  Company Number: None

PATIENT
  Age: 72 Year
  Sex: Female
  Weight: 88.9 kg

DRUGS (11)
  1. INDOMETHACIN [Suspect]
     Indication: GOUT
     Dosage: 75 MG PO 4X1 DAY
     Route: 048
  2. REGLAN [Suspect]
     Indication: NAUSEA
     Dosage: 10 MG IV QID
     Route: 042
  3. REGLAN [Suspect]
     Indication: VOMITING
     Dosage: 10 MG IV QID
     Route: 042
  4. PREVACID [Concomitant]
  5. ASPIRIN [Concomitant]
  6. ATENOLOL [Concomitant]
  7. HYDROCHLOROTHIAZIDE [Concomitant]
  8. LIPITOR [Concomitant]
  9. LOPID [Concomitant]
  10. MULTIVIT [Concomitant]
  11. OSCAL [Concomitant]

REACTIONS (12)
  - ABDOMINAL DISTENSION [None]
  - ABDOMINAL PAIN UPPER [None]
  - CONFUSIONAL STATE [None]
  - EPIGASTRIC DISCOMFORT [None]
  - HAEMATOCHEZIA [None]
  - MELAENA [None]
  - MEMORY IMPAIRMENT [None]
  - NAUSEA [None]
  - RECTAL HAEMORRHAGE [None]
  - SENSATION OF PRESSURE [None]
  - SPEECH DISORDER [None]
  - VOMITING [None]
